FAERS Safety Report 18559528 (Version 5)
Quarter: 2021Q3

REPORT INFORMATION
  Report Type: Spontaneous
  Country: US (occurrence: US)
  Receive Date: 20201130
  Receipt Date: 20210811
  Transmission Date: 20211014
  Serious: Yes (Other)
  Sender: FDA-Public Use
  Company Number: US-PFIZER INC-2020085494

PATIENT
  Age: 65 Year
  Sex: Female
  Weight: 102 kg

DRUGS (3)
  1. PREMARIN [Suspect]
     Active Substance: ESTROGENS, CONJUGATED
     Indication: VULVOVAGINAL DRYNESS
     Dosage: UNK (THREE TIMES A WEEK)
  2. CEPHALEXIN [CEFALEXIN] [Concomitant]
     Active Substance: CEPHALEXIN
     Indication: ANTIBIOTIC THERAPY
     Dosage: 250 MG, 1X/DAY
     Dates: start: 2013
  3. PREMARIN [Suspect]
     Active Substance: ESTROGENS, CONJUGATED
     Indication: PROPHYLAXIS URINARY TRACT INFECTION
     Dosage: 1 G  (THREE TIMES A WEEK)
     Route: 067

REACTIONS (3)
  - Urinary tract infection [Not Recovered/Not Resolved]
  - Blood urine [Unknown]
  - Off label use [Unknown]
